FAERS Safety Report 7484915-6 (Version None)
Quarter: 2011Q2

REPORT INFORMATION
  Report Type: 
  Country: None (occurrence: None)
  Receive Date: 20110517
  Receipt Date: 20110511
  Transmission Date: 20111010
  Serious: Yes (Hospitalization)
  Sender: FDA-Public Use
  Company Number: B0713267A

PATIENT
  Sex: Male
  Weight: 2.7 kg

DRUGS (6)
  1. DEPAS [Suspect]
     Indication: INSOMNIA
     Dosage: 8MG PER DAY
     Route: 064
     Dates: start: 20101101
  2. MUCOSTA [Concomitant]
     Indication: INSOMNIA
     Dosage: 200MG PER DAY
     Route: 064
     Dates: start: 20101101
  3. ZYPREXA [Concomitant]
     Indication: INSOMNIA
     Dosage: 5MG PER DAY
     Route: 064
     Dates: start: 20100723
  4. LUVOX [Suspect]
     Indication: HYPERVENTILATION
     Dosage: 100MG PER DAY
     Route: 064
     Dates: start: 20100827, end: 20101108
  5. PAXIL [Suspect]
     Indication: HYPERVENTILATION
     Dosage: 10MG PER DAY
     Route: 064
     Dates: start: 20101213
  6. TECIPUL [Concomitant]
     Indication: INSOMNIA
     Dosage: 2MG PER DAY
     Route: 064
     Dates: start: 20100910

REACTIONS (3)
  - JAUNDICE NEONATAL [None]
  - NEONATAL ASPHYXIA [None]
  - DRUG EXPOSURE DURING PREGNANCY [None]
